FAERS Safety Report 10362727 (Version 1)
Quarter: 2014Q3

REPORT INFORMATION
  Report Type: Spontaneous
  Country: FR (occurrence: FR)
  Receive Date: 20140805
  Receipt Date: 20140805
  Transmission Date: 20150326
  Serious: Yes (Hospitalization)
  Sender: FDA-Public Use
  Company Number: FR-PFIZER INC-2014214769

PATIENT
  Age: 51 Year
  Sex: Female
  Weight: 65 kg

DRUGS (1)
  1. VERAPAMIL HCL [Suspect]
     Active Substance: VERAPAMIL HYDROCHLORIDE
     Dosage: 9.6 G (40 CP OF 240 MG)

REACTIONS (8)
  - Intentional overdose [Unknown]
  - Prothrombin level decreased [Unknown]
  - Renal failure acute [Unknown]
  - Liver function test abnormal [Unknown]
  - Metabolic acidosis [Unknown]
  - Hepatocellular injury [Unknown]
  - Sinus bradycardia [Unknown]
  - Hypotension [Unknown]
